FAERS Safety Report 9866982 (Version 1)
Quarter: 2014Q1

REPORT INFORMATION
  Report Type: Spontaneous
  Country: US (occurrence: None)
  Receive Date: 20140203
  Receipt Date: 20140203
  Transmission Date: 20141002
  Serious: No
  Sender: FDA-Public Use
  Company Number: None

PATIENT
  Age: 33 Year
  Sex: Female
  Weight: 49.9 kg

DRUGS (1)
  1. CLINDAMYCIN [Suspect]
     Indication: INTENTIONAL SELF-INJURY
     Route: 048
     Dates: start: 20140129, end: 20140131

REACTIONS (6)
  - Rash generalised [None]
  - Ocular icterus [None]
  - Chills [None]
  - Flatulence [None]
  - Abdominal distension [None]
  - Diarrhoea [None]
